FAERS Safety Report 5806362-2 (Version None)
Quarter: 2008Q3

REPORT INFORMATION
  Report Type: 
  Country: None (occurrence: None)
  Receive Date: 20080710
  Receipt Date: 20080703
  Transmission Date: 20090109
  Serious: Yes (Hospitalization)
  Sender: FDA-Public Use
  Company Number: US-ASTRAZENECA-2008AC01692

PATIENT
  Age: 57 Year
  Sex: Male

DRUGS (5)
  1. ZAFIRLUKAST [Suspect]
     Route: 048
  2. MONTELUKAST SODIUM [Suspect]
  3. ALPRAZOLAM [Concomitant]
     Dosage: TAKEN FOR 5 YEARS
     Route: 048
  4. AMLODIPINE BESYLATE AND BENAZEPRIL HCL [Concomitant]
     Dosage: 5/20 MG
     Route: 048
  5. NABUMETONE [Concomitant]
     Route: 048

REACTIONS (1)
  - WARM TYPE HAEMOLYTIC ANAEMIA [None]
